FAERS Safety Report 16392233 (Version 1)
Quarter: 2019Q2

REPORT INFORMATION
  Report Type: Spontaneous
  Country: US (occurrence: US)
  Receive Date: 20190605
  Receipt Date: 20190605
  Transmission Date: 20190711
  Serious: No
  Sender: FDA-Public Use
  Company Number: US-ROCHE-2290861

PATIENT
  Sex: Female
  Weight: 45.4 kg

DRUGS (4)
  1. OCREVUS [Suspect]
     Active Substance: OCRELIZUMAB
     Indication: RELAPSING MULTIPLE SCLEROSIS
     Route: 042
     Dates: start: 201802
  2. OCREVUS [Suspect]
     Active Substance: OCRELIZUMAB
     Dosage: 2ND HALF DOSE
     Route: 042
     Dates: start: 201802
  3. OCREVUS [Suspect]
     Active Substance: OCRELIZUMAB
     Route: 042
     Dates: start: 20190306
  4. OCREVUS [Suspect]
     Active Substance: OCRELIZUMAB
     Route: 042
     Dates: start: 20180904

REACTIONS (11)
  - Weight decreased [Unknown]
  - Tremor [Unknown]
  - Malaise [Unknown]
  - Abdominal pain upper [Unknown]
  - Decreased appetite [Unknown]
  - Feeling abnormal [Unknown]
  - Chills [Unknown]
  - Feeling hot [Unknown]
  - Taste disorder [Unknown]
  - Nausea [Unknown]
  - Hepatic enzyme increased [Unknown]
